FAERS Safety Report 12507490 (Version 1)
Quarter: 2016Q2

REPORT INFORMATION
  Report Type: Spontaneous
  Country: US (occurrence: US)
  Receive Date: 20160629
  Receipt Date: 20160629
  Transmission Date: 20160815
  Serious: Yes (Other)
  Sender: FDA-Public Use
  Company Number: US-PROCTER_AND_GAMBLE-GS16081643

PATIENT
  Age: 2 Year
  Sex: Male

DRUGS (1)
  1. PEPTO-BISMOL [Suspect]
     Active Substance: BISMUTH SUBSALICYLATE
     Dosage: DRANK THE WHOLE BOTTLE, 1 ONLY
     Route: 048

REACTIONS (4)
  - Accidental exposure to product by child [None]
  - Gastric lavage [None]
  - Exposure via ingestion [None]
  - No adverse event [None]
